FAERS Safety Report 14754474 (Version 1)
Quarter: 2018Q2

REPORT INFORMATION
  Report Type: Spontaneous
  Country: CA (occurrence: CA)
  Receive Date: 20180412
  Receipt Date: 20180412
  Transmission Date: 20180711
  Serious: Yes (Disabling, Other)
  Sender: FDA-Public Use
  Company Number: CA-TEVA-2018-CA-879042

PATIENT
  Age: 67 Year
  Sex: Female

DRUGS (4)
  1. OMEPRAZOLE. [Concomitant]
     Active Substance: OMEPRAZOLE
  2. LEVAQUIN [Concomitant]
     Active Substance: LEVOFLOXACIN
  3. ACT LEVOFLOXACIN [Suspect]
     Active Substance: LEVOFLOXACIN
     Indication: HELICOBACTER INFECTION
     Route: 048
  4. AMOXIL [Concomitant]
     Active Substance: AMOXICILLIN

REACTIONS (4)
  - Muscle injury [Recovering/Resolving]
  - Arthralgia [Recovering/Resolving]
  - Burning sensation [Recovering/Resolving]
  - Pain in extremity [Recovering/Resolving]
